FAERS Safety Report 22181865 (Version 2)
Quarter: 2023Q2

REPORT INFORMATION
  Report Type: Spontaneous
  Country: CA (occurrence: CA)
  Receive Date: 20230406
  Receipt Date: 20230411
  Transmission Date: 20230721
  Serious: Yes (Other)
  Sender: FDA-Public Use
  Company Number: CA-PFIZER INC-202300143260

PATIENT
  Age: 61 Year
  Sex: Female

DRUGS (9)
  1. PALBOCICLIB [Interacting]
     Active Substance: PALBOCICLIB
     Indication: Breast cancer metastatic
     Dosage: UNK
  2. ANASTROZOLE [Interacting]
     Active Substance: ANASTROZOLE
     Indication: Invasive ductal breast carcinoma
     Dosage: UNK
  3. LETROZOLE [Interacting]
     Active Substance: LETROZOLE
     Indication: Invasive ductal breast carcinoma
     Dosage: UNK
  4. LETROZOLE [Interacting]
     Active Substance: LETROZOLE
     Indication: Breast cancer recurrent
  5. LETROZOLE [Interacting]
     Active Substance: LETROZOLE
     Indication: Breast cancer metastatic
  6. LETROZOLE [Interacting]
     Active Substance: LETROZOLE
     Indication: Invasive ductal breast carcinoma
     Dosage: UNK
  7. LETROZOLE [Interacting]
     Active Substance: LETROZOLE
     Indication: Breast cancer recurrent
  8. LETROZOLE [Interacting]
     Active Substance: LETROZOLE
     Indication: Breast cancer metastatic
  9. TAMOXIFEN CITRATE [Interacting]
     Active Substance: TAMOXIFEN CITRATE
     Indication: Invasive ductal breast carcinoma
     Dosage: UNK

REACTIONS (2)
  - Drug interaction [Unknown]
  - Drug-induced liver injury [Unknown]
